FAERS Safety Report 7316667-4 (Version None)
Quarter: 2011Q1

REPORT INFORMATION
  Report Type: 
  Country: None (occurrence: None)
  Receive Date: 20110226
  Receipt Date: 20100723
  Transmission Date: 20110831
  Serious: No
  Sender: FDA-Public Use
  Company Number: US-ALLERGAN-1009735US

PATIENT
  Sex: Female

DRUGS (2)
  1. JUVEDERM ULTRA PLUS [Concomitant]
     Dosage: UNK
     Dates: start: 20100521, end: 20100521
  2. BOTOX COSMETIC [Suspect]
     Indication: SKIN WRINKLING
     Dosage: UNK
     Dates: start: 20100521, end: 20100521

REACTIONS (1)
  - SKIN HYPERPIGMENTATION [None]
